FAERS Safety Report 25394187 (Version 6)
Quarter: 2025Q3

REPORT INFORMATION
  Report Type: Report from Study
  Country: CA (occurrence: CA)
  Receive Date: 20250604
  Receipt Date: 20250829
  Transmission Date: 20251021
  Serious: Yes (Other)
  Sender: JOHNSON AND JOHNSON
  Company Number: CA-JNJFOC-20250533928

PATIENT
  Age: 44 Year
  Sex: Female
  Weight: 69 kg

DRUGS (8)
  1. RYBREVANT [Suspect]
     Active Substance: AMIVANTAMAB-VMJW
     Indication: Non-small cell lung cancer
     Route: 042
     Dates: start: 20250528
  2. RYBREVANT [Suspect]
     Active Substance: AMIVANTAMAB-VMJW
     Route: 065
  3. RYBREVANT [Suspect]
     Active Substance: AMIVANTAMAB-VMJW
     Route: 065
  4. RYBREVANT [Suspect]
     Active Substance: AMIVANTAMAB-VMJW
     Route: 065
  5. RYBREVANT [Suspect]
     Active Substance: AMIVANTAMAB-VMJW
     Dosage: LOT EXPIRY DATE: JN-2027
     Route: 042
  6. RYBREVANT [Suspect]
     Active Substance: AMIVANTAMAB-VMJW
     Route: 065
     Dates: start: 20250820
  7. DEXAMETHASONE [Concomitant]
     Active Substance: DEXAMETHASONE
     Indication: Premedication
     Route: 042
  8. PEMETREXED [Concomitant]
     Active Substance: PEMETREXED
     Indication: Product used for unknown indication

REACTIONS (8)
  - Cough [Recovered/Resolved]
  - Hypertension [Recovering/Resolving]
  - Infusion related reaction [Recovered/Resolved]
  - Respiratory tract irritation [Recovered/Resolved]
  - Fatigue [Unknown]
  - Rash [Recovering/Resolving]
  - Body temperature increased [Recovered/Resolved]
  - Intentional product use issue [Unknown]

NARRATIVE: CASE EVENT DATE: 20250528
